FAERS Safety Report 21999883 (Version 2)
Quarter: 2023Q2

REPORT INFORMATION
  Report Type: Spontaneous
  Country: US (occurrence: US)
  Receive Date: 20230216
  Receipt Date: 20230428
  Transmission Date: 20230721
  Serious: Yes (Hospitalization, Other)
  Sender: FDA-Public Use
  Company Number: US-ELI_LILLY_AND_COMPANY-US202302006304

PATIENT
  Sex: Male
  Weight: 102.95 kg

DRUGS (1)
  1. MOUNJARO [Suspect]
     Active Substance: TIRZEPATIDE
     Indication: Type 2 diabetes mellitus
     Dosage: 7.5 MG, WEEKLY (1/W)
     Route: 058
     Dates: start: 20220920, end: 20221129

REACTIONS (4)
  - Pancreatitis necrotising [Recovered/Resolved with Sequelae]
  - Weight decreased [Unknown]
  - Hepatic steatosis [Unknown]
  - Cholelithiasis [Unknown]
